FAERS Safety Report 17543687 (Version 3)
Quarter: 2020Q4

REPORT INFORMATION
  Report Type: Report from Study
  Country: GB (occurrence: GB)
  Receive Date: 20200316
  Receipt Date: 20201019
  Transmission Date: 20210113
  Serious: Yes (Hospitalization)
  Sender: FDA-Public Use
  Company Number: GB-SA-2020SA061230

PATIENT

DRUGS (9)
  1. LOPERAMIDE [Concomitant]
     Active Substance: LOPERAMIDE
     Indication: DIARRHOEA
     Dosage: 2 MG, PRN
     Route: 048
     Dates: start: 20191228, end: 20200313
  2. OMEPRAZOLE. [Concomitant]
     Active Substance: OMEPRAZOLE
     Indication: GASTROINTESTINAL DISORDER PROPHYLAXIS
     Dosage: 20 MG, QD
     Route: 048
     Dates: start: 20200120, end: 20200313
  3. SENNA [Concomitant]
     Active Substance: SENNA LEAF\SENNOSIDES\SENNOSIDES A AND B
     Indication: CONSTIPATION
     Dosage: 15 MG, QD
     Route: 048
     Dates: start: 202003
  4. CABAZITAXEL [Suspect]
     Active Substance: CABAZITAXEL
     Indication: BREAST CANCER METASTATIC
     Dosage: 48 MG, Q3W (INFUSION)
     Route: 042
     Dates: start: 20200206, end: 20200206
  5. PARACETAMOL [Concomitant]
     Active Substance: ACETAMINOPHEN
     Indication: MYALGIA
     Dosage: 4 G QDS PRN
     Route: 048
     Dates: start: 20191222
  6. MAGNASPARTATE [Concomitant]
     Indication: HYPOMAGNESAEMIA
     Dosage: 2 DF, BID (SACHET)
     Route: 048
     Dates: start: 202003
  7. OXYCODONE [Concomitant]
     Active Substance: OXYCODONE
     Indication: MYALGIA
     Dosage: 20 MG, PRN
     Route: 048
     Dates: start: 202003
  8. DOCUSATE [Concomitant]
     Active Substance: DOCUSATE
     Indication: CONSTIPATION
     Dosage: 300 MG, TID
     Route: 048
     Dates: start: 202003
  9. COCODAMOL [Concomitant]
     Active Substance: ACETAMINOPHEN\CODEINE PHOSPHATE
     Indication: MYALGIA
     Dosage: 30/500 MG QOS, PRN
     Route: 048
     Dates: start: 20191122, end: 20200313

REACTIONS (1)
  - Acute kidney injury [Recovered/Resolved]

NARRATIVE: CASE EVENT DATE: 20200303
